FAERS Safety Report 13865286 (Version 1)
Quarter: 2017Q3

REPORT INFORMATION
  Report Type: Other
  Country: GB (occurrence: GB)
  Receive Date: 20170814
  Receipt Date: 20170814
  Transmission Date: 20171127
  Serious: Yes (Life-Threatening)
  Sender: FDA-Public Use
  Company Number: GB-GEHC-2017CSU002498

PATIENT

DRUGS (1)
  1. OMNIPAQUE [Suspect]
     Active Substance: IOHEXOL
     Indication: RENAL DISORDER
     Dosage: UNK UNK, SINGLE
     Route: 042
     Dates: start: 20170705, end: 20170705

REACTIONS (6)
  - Wheezing [Recovered/Resolved]
  - Dyspnoea [Unknown]
  - Rash [Recovered/Resolved]
  - Laryngospasm [Recovered/Resolved]
  - Vomiting [Recovered/Resolved]
  - Flushing [Unknown]

NARRATIVE: CASE EVENT DATE: 20170705
